FAERS Safety Report 16869696 (Version 1)
Quarter: 2019Q3

REPORT INFORMATION
  Report Type: Spontaneous
  Country: NL (occurrence: NL)
  Receive Date: 20190930
  Receipt Date: 20190930
  Transmission Date: 20191005
  Serious: Yes (Other)
  Sender: FDA-Public Use
  Company Number: NL-MYLANLABS-2019M1090500

PATIENT
  Sex: Female
  Weight: 85 kg

DRUGS (1)
  1. TIMOLOL. [Suspect]
     Active Substance: TIMOLOL
     Indication: GLAUCOMA
     Dosage: 1 GTT DROPS, QD (1X PER DAG 1 DRUPPEL PER OOG)
     Route: 047
     Dates: start: 20181101

REACTIONS (4)
  - Nausea [Not Recovered/Not Resolved]
  - Headache [Not Recovered/Not Resolved]
  - Eye burns [Not Recovered/Not Resolved]
  - Insomnia [Not Recovered/Not Resolved]
